FAERS Safety Report 25159364 (Version 1)
Quarter: 2025Q2

REPORT INFORMATION
  Report Type: Spontaneous
  Country: US (occurrence: US)
  Receive Date: 20250404
  Receipt Date: 20250404
  Transmission Date: 20250717
  Serious: Yes (Other)
  Sender: COOPERSURGICAL
  Company Number: US-COOPERSURGICAL, INC.-2025CPS002405

PATIENT
  Age: 48 Year
  Sex: Female
  Weight: 65.306 kg

DRUGS (3)
  1. PARAGARD T 380A [Suspect]
     Active Substance: COPPER
     Route: 015
     Dates: start: 20100504
  2. LISINOPRIL [Concomitant]
     Active Substance: LISINOPRIL
     Dates: start: 2010
  3. BUSPAR [Concomitant]
     Active Substance: BUSPIRONE HYDROCHLORIDE
     Dates: start: 2020, end: 2023

REACTIONS (13)
  - Reproductive complication associated with device [Unknown]
  - Device breakage [Not Recovered/Not Resolved]
  - Foreign body in reproductive tract [Not Recovered/Not Resolved]
  - Complication of device removal [Not Recovered/Not Resolved]
  - Embedded device [Not Recovered/Not Resolved]
  - Emotional disorder [Unknown]
  - Sexual dysfunction [Unknown]
  - Intentional device use issue [Unknown]
  - Off label use [Unknown]
  - Pain [Recovered/Resolved]
  - Muscle spasms [Recovered/Resolved]
  - Abnormal uterine bleeding [Recovered/Resolved]
  - Menstrual disorder [Unknown]

NARRATIVE: CASE EVENT DATE: 20200714
